FAERS Safety Report 23776881 (Version 2)
Quarter: 2024Q2

REPORT INFORMATION
  Report Type: Spontaneous
  Country: RO (occurrence: RO)
  Receive Date: 20240424
  Receipt Date: 20240425
  Transmission Date: 20240715
  Serious: Yes (Other)
  Sender: FDA-Public Use
  Company Number: RO-BRISTOL-MYERS SQUIBB COMPANY-2024-060657

PATIENT
  Age: 19 Year
  Sex: Male

DRUGS (2)
  1. NIVOLUMAB [Suspect]
     Active Substance: NIVOLUMAB
     Indication: Malignant melanoma
     Dates: start: 201706
  2. INTERFERON ALFA-2B [Concomitant]
     Active Substance: INTERFERON ALFA-2B
     Dosage: DOSE- 10.000UI/M2 X3/SAPT

REACTIONS (2)
  - Rheumatoid arthritis [Unknown]
  - Oligoarthritis [Unknown]

NARRATIVE: CASE EVENT DATE: 20170101
